FAERS Safety Report 18807895 (Version 1)
Quarter: 2021Q1

REPORT INFORMATION
  Report Type: Other
  Country: CA (occurrence: CA)
  Receive Date: 20210129
  Receipt Date: 20210129
  Transmission Date: 20210419
  Serious: Yes (Death, Hospitalization, Other)
  Sender: FDA-Public Use
  Company Number: CA-APOTEX-2021AP001723

PATIENT
  Sex: Female

DRUGS (1)
  1. ROSUVASTATIN. [Suspect]
     Active Substance: ROSUVASTATIN
     Indication: PRODUCT USED FOR UNKNOWN INDICATION
     Dosage: UNK
     Route: 048

REACTIONS (18)
  - Coma [Fatal]
  - Nephrolithiasis [Fatal]
  - Rhabdomyolysis [Fatal]
  - Myocardial infarction [Fatal]
  - Blood potassium abnormal [Fatal]
  - Brain injury [Fatal]
  - Chronic kidney disease [Fatal]
  - Cough [Fatal]
  - Dyspnoea [Fatal]
  - Limb discomfort [Fatal]
  - Coronary artery disease [Fatal]
  - Peripheral vascular disorder [Fatal]
  - Hypotension [Fatal]
  - Acute kidney injury [Fatal]
  - Retinopathy [Fatal]
  - Death [Fatal]
  - Platelet disorder [Fatal]
  - Haematocrit [Fatal]
